FAERS Safety Report 7674834-4 (Version None)
Quarter: 2011Q3

REPORT INFORMATION
  Report Type: 
  Country: None (occurrence: None)
  Receive Date: 20110810
  Receipt Date: 20110801
  Transmission Date: 20111222
  Serious: Yes (Other)
  Sender: FDA-Public Use
  Company Number: US-ROCHE-794541

PATIENT

DRUGS (1)
  1. ACCUTANE [Suspect]
     Route: 065
     Dates: start: 19860528, end: 19870131

REACTIONS (2)
  - CROHN'S DISEASE [None]
  - LARGE INTESTINE PERFORATION [None]
